FAERS Safety Report 10133284 (Version 2)
Quarter: 2014Q2

REPORT INFORMATION
  Report Type: Spontaneous
  Country: US (occurrence: US)
  Receive Date: 20140428
  Receipt Date: 20140501
  Transmission Date: 20141212
  Serious: Yes (Other)
  Sender: FDA-Public Use
  Company Number: US-PFIZER INC-2014116667

PATIENT
  Age: 58 Year
  Sex: Male
  Weight: 79.37 kg

DRUGS (4)
  1. CHANTIX [Suspect]
     Indication: SMOKING CESSATION THERAPY
     Dosage: 1 MG, 2X/WEEK
     Dates: start: 20120430
  2. NORCO [Concomitant]
     Indication: PAIN
     Dosage: UNK
  3. OXYMORPHONE [Concomitant]
     Indication: PAIN
     Dosage: UNK
  4. FLEXERIL [Concomitant]
     Indication: MUSCLE SPASMS
     Dosage: UNK

REACTIONS (4)
  - Laryngeal cancer [Unknown]
  - Drug ineffective [Unknown]
  - Dysgeusia [Unknown]
  - Tobacco user [Unknown]
